FAERS Safety Report 10580677 (Version 4)
Quarter: 2015Q3

REPORT INFORMATION
  Report Type: Report from Study
  Country: US (occurrence: US)
  Receive Date: 20141113
  Receipt Date: 20150902
  Transmission Date: 20151125
  Serious: No
  Sender: FDA-Public Use
  Company Number: US-AMGEN-USASP2014029868

PATIENT
  Age: 71 Year
  Sex: Male

DRUGS (2)
  1. ENBREL [Suspect]
     Active Substance: ETANERCEPT
     Indication: RHEUMATOID ARTHRITIS
     Dosage: 50 MG, QWK
     Route: 058
     Dates: start: 201311, end: 201408
  2. NAPROSYN [Concomitant]
     Active Substance: NAPROXEN
     Dosage: 500 UNK, UNK
     Route: 048

REACTIONS (4)
  - Nasopharyngitis [Unknown]
  - Ear infection [Recovered/Resolved]
  - Ear pain [Recovered/Resolved]
  - Upper respiratory tract infection [Recovered/Resolved]

NARRATIVE: CASE EVENT DATE: 201311
